FAERS Safety Report 7335733-0 (Version None)
Quarter: 2011Q1

REPORT INFORMATION
  Report Type: 
  Country: None (occurrence: None)
  Receive Date: 20110307
  Receipt Date: 20110303
  Transmission Date: 20110831
  Serious: Yes (Hospitalization)
  Sender: FDA-Public Use
  Company Number: B0703479A

PATIENT
  Age: 90 Year
  Sex: Female

DRUGS (8)
  1. CRESTOR [Concomitant]
     Dosage: 10MG PER DAY
     Route: 048
  2. AMLOR [Concomitant]
     Route: 065
  3. AUGMENTIN [Suspect]
     Indication: ERYSIPELAS
     Route: 048
     Dates: start: 20101230, end: 20110106
  4. KARDEGIC [Concomitant]
     Dosage: 75MG PER DAY
     Route: 048
  5. CARDENSIEL [Concomitant]
     Route: 065
  6. COVERSYL [Concomitant]
     Route: 065
  7. AUGMENTIN [Suspect]
     Indication: ERYSIPELAS
     Dosage: 6G PER DAY
     Route: 042
     Dates: start: 20101227, end: 20101229
  8. DISCOTRINE [Concomitant]
     Route: 065

REACTIONS (10)
  - RASH MORBILLIFORM [None]
  - INFLAMMATION [None]
  - SKIN EXFOLIATION [None]
  - ACUTE GENERALISED EXANTHEMATOUS PUSTULOSIS [None]
  - RASH MACULO-PAPULAR [None]
  - LEUKOCYTOSIS [None]
  - PRURITUS [None]
  - DIARRHOEA [None]
  - RASH ERYTHEMATOUS [None]
  - SCAR [None]
